FAERS Safety Report 8789130 (Version 1)
Quarter: 2012Q4

REPORT INFORMATION
  Report Type: Spontaneous
  Country: US (occurrence: None)
  Receive Date: 20120904
  Receipt Date: 20120904
  Transmission Date: 20130627
  Serious: Yes (Other)
  Sender: FDA-Public Use
  Company Number: 101103-011359

PATIENT
  Age: 18 Year
  Sex: Female

DRUGS (3)
  1. PROACTIVE SOLUTION CLEANING BAR [Suspect]
     Indication: ACNE
     Dosage: dermal
     Dates: start: 20100211
  2. PROACTIV REPAIRING TREATMENT [Suspect]
     Dosage: dermal
  3. DARVOCET [Concomitant]

REACTIONS (6)
  - Swelling face [None]
  - Erythema [None]
  - Obstructive airways disorder [None]
  - Urticaria [None]
  - Hypersensitivity [None]
  - Dyspnoea [None]
